FAERS Safety Report 26153086 (Version 1)
Quarter: 2025Q4

REPORT INFORMATION
  Report Type: Report from Study
  Country: US (occurrence: US)
  Receive Date: 20251214
  Receipt Date: 20251214
  Transmission Date: 20260118
  Serious: Yes (Other)
  Sender: ABBVIE
  Company Number: US-JNJFOC-20251202185

PATIENT

DRUGS (2)
  1. IBRUTINIB [Suspect]
     Active Substance: IBRUTINIB
     Indication: Chronic lymphocytic leukaemia
     Route: 048
  2. VENCLEXTA [Suspect]
     Active Substance: VENETOCLAX
     Indication: Product used for unknown indication
     Route: 048

REACTIONS (7)
  - Renal failure [Unknown]
  - Fatigue [Unknown]
  - Adverse event [Unknown]
  - Intentional product use issue [Unknown]
  - Off label use [Unknown]
  - Diarrhoea [Unknown]
  - Rash [Unknown]
